FAERS Safety Report 8052134-0 (Version None)
Quarter: 2012Q1

REPORT INFORMATION
  Report Type: 
  Country: None (occurrence: None)
  Receive Date: 20120118
  Receipt Date: 20120111
  Transmission Date: 20120608
  Serious: No
  Sender: FDA-Public Use
  Company Number: US-PFIZER INC-2012009637

PATIENT
  Age: 8 Month
  Sex: Female
  Weight: 8.617 kg

DRUGS (2)
  1. PEDIATRIC ADVIL [Suspect]
     Indication: PYREXIA
     Dosage: 1.875 ML, 3X/DAY
     Route: 048
     Dates: start: 20120108, end: 20120110
  2. PEDIATRIC ADVIL [Suspect]
     Indication: TEETHING

REACTIONS (1)
  - FAECES DISCOLOURED [None]
